FAERS Safety Report 11540738 (Version 1)
Quarter: 2015Q3

REPORT INFORMATION
  Report Type: Spontaneous
  Country: CH (occurrence: CH)
  Receive Date: 20150923
  Receipt Date: 20150923
  Transmission Date: 20151125
  Serious: Yes (Death, Hospitalization, Other)
  Sender: FDA-Public Use
  Company Number: CH-GLAXOSMITHKLINE-CH2015GSK135762

PATIENT
  Age: 71 Year
  Sex: Male

DRUGS (2)
  1. PAZOPANIB [Suspect]
     Active Substance: PAZOPANIB
     Indication: NEOPLASM PROGRESSION
  2. PAZOPANIB [Suspect]
     Active Substance: PAZOPANIB
     Indication: RENAL CANCER METASTATIC
     Dosage: 800 MG, QD
     Route: 065

REACTIONS (12)
  - Septic shock [Fatal]
  - Pneumatosis intestinalis [Fatal]
  - White blood cell count increased [Unknown]
  - Ischaemia [Unknown]
  - Pyrexia [Unknown]
  - Abdominal pain [Unknown]
  - Pneumatosis [Fatal]
  - Blood lactic acid increased [Unknown]
  - Lung infection [Unknown]
  - Portal venous gas [Unknown]
  - C-reactive protein increased [Unknown]
  - Abdominal discomfort [Unknown]
